FAERS Safety Report 8670334 (Version 2)
Quarter: 2012Q4

REPORT INFORMATION
  Report Type: 
  Country: US (occurrence: US)
  Receive Date: 20120718
  Receipt Date: 20120830
  Transmission Date: 20130627
  Serious: No
  Sender: FDA-Public Use
  Company Number: US-BAYER-2012-070038

PATIENT
  Age: 40 Year
  Sex: Female

DRUGS (3)
  1. BETASERON [Suspect]
     Indication: MULTIPLE SCLEROSIS
     Dosage: 0.3 mg, QOD
     Route: 058
     Dates: start: 200103
  2. PRILOSEC [Concomitant]
     Indication: GASTRITIS
     Dosage: 20 mg, QD
     Dates: start: 201105
  3. LOESTRIN FE [Concomitant]
     Indication: ENDOMETRIOSIS
     Dosage: 24 Fe, QD
     Dates: start: 2006

REACTIONS (5)
  - Erythema [Not Recovered/Not Resolved]
  - Pain in extremity [Recovering/Resolving]
  - Skin warm [Recovering/Resolving]
  - Injection site swelling [Recovering/Resolving]
  - Injection site discolouration [Recovering/Resolving]
